FAERS Safety Report 10790487 (Version 3)
Quarter: 2015Q1

REPORT INFORMATION
  Report Type: Spontaneous
  Country: US (occurrence: US)
  Receive Date: 20150212
  Receipt Date: 20150312
  Transmission Date: 20150721
  Serious: Yes (Other)
  Sender: FDA-Public Use
  Company Number: US-PFIZER INC-2015052336

PATIENT
  Age: 65 Year
  Sex: Female

DRUGS (5)
  1. PRISTIQ EXTENDED RELEASE [Suspect]
     Active Substance: DESVENLAFAXINE SUCCINATE
     Indication: BIPOLAR DISORDER
     Dosage: 50 MG, 1X/DAY
     Dates: start: 2007
  2. TEMAZEPAM. [Concomitant]
     Active Substance: TEMAZEPAM
     Indication: SLEEP DISORDER
     Dosage: 30 MG, 1X/DAY AT NIGHT
     Dates: start: 2010
  3. HYDROCODONE W/ACETAMINOPHEN [Concomitant]
     Active Substance: ACETAMINOPHEN\HYDROCODONE BITARTRATE
     Indication: PAIN IN EXTREMITY
     Dosage: 1 DF, 3X/DAY (HYDROCODONE 10 MG, ACETAMIN 325 MG)
     Dates: start: 2008
  4. SIMVASTATIN. [Concomitant]
     Active Substance: SIMVASTATIN
     Indication: BLOOD CHOLESTEROL
     Dosage: 20 MG, 1X/DAY
     Dates: start: 2008
  5. POTASSIUM CHLORIDE. [Concomitant]
     Active Substance: POTASSIUM CHLORIDE
     Indication: MUSCLE SPASMS
     Dosage: 10 MEQ, 2X/DAY (10 MEQ CER 2X DAY)
     Dates: start: 2014

REACTIONS (4)
  - Headache [Unknown]
  - Feeling abnormal [Unknown]
  - Bipolar disorder [Unknown]
  - Suicidal ideation [Unknown]
